FAERS Safety Report 4689462-2 (Version None)
Quarter: 2005Q2

REPORT INFORMATION
  Report Type: 
  Country: None (occurrence: None)
  Receive Date: 20050311
  Receipt Date: 20050311
  Transmission Date: 20051028
  Serious: Yes (Other)
  Sender: FDA-Public Use
  Company Number: None

PATIENT
  Sex: Male
  Weight: 69.4003 kg

DRUGS (2)
  1. CARBAMAZEPINE [Suspect]
     Indication: CONVULSION
     Dosage: TWO BID (200 MG)
  2. DEPAKOTE [Concomitant]

REACTIONS (2)
  - CONVULSION [None]
  - DRUG EFFECT DECREASED [None]
